FAERS Safety Report 4992720-5 (Version None)
Quarter: 2006Q1

REPORT INFORMATION
  Report Type: 
  Country: None (occurrence: None)
  Receive Date: 20060316
  Receipt Date: 20050601
  Transmission Date: 20060701
  Serious: Yes (Hospitalization, Other)
  Sender: FDA-Public Use
  Company Number: 18735

PATIENT
  Age: 57 Year
  Sex: Male

DRUGS (1)
  1. PAMIDRONATE DISODIUM [Suspect]
     Indication: OSTEOPOROSIS
     Dosage: 30MG/X1/IV
     Route: 042
     Dates: start: 20050503

REACTIONS (2)
  - INJECTION SITE PHLEBITIS [None]
  - INJECTION SITE REACTION [None]
